FAERS Safety Report 24588269 (Version 3)
Quarter: 2025Q3

REPORT INFORMATION
  Report Type: Report from Study
  Country: US (occurrence: US)
  Receive Date: 20241107
  Receipt Date: 20250810
  Transmission Date: 20251020
  Serious: Yes (Hospitalization, Other)
  Sender: ALEXION PHARMACEUTICALS
  Company Number: US-ASTRAZENECA-2020SE76382

PATIENT
  Sex: Female

DRUGS (6)
  1. FASENRA [Suspect]
     Active Substance: BENRALIZUMAB
  2. FASENRA [Suspect]
     Active Substance: BENRALIZUMAB
  3. QUETIAPINE FUMARATE [Concomitant]
     Active Substance: QUETIAPINE FUMARATE
     Route: 065
  4. PROLIA [Concomitant]
     Active Substance: DENOSUMAB
     Route: 065
  5. VITAMIN D [Concomitant]
     Active Substance: VITAMIN D NOS
     Route: 065
  6. CITALOPRAM [Concomitant]
     Active Substance: CITALOPRAM
     Route: 065

REACTIONS (27)
  - Pneumonia [Unknown]
  - Asthma [Unknown]
  - Dyspnoea [Unknown]
  - Product use issue [Unknown]
  - Anxiety [Unknown]
  - Intervertebral disc protrusion [Unknown]
  - Back pain [Unknown]
  - Pain in extremity [Unknown]
  - Dry eye [Unknown]
  - Pulmonary mass [Unknown]
  - Decreased appetite [Unknown]
  - Osteoporosis [Unknown]
  - Diverticulitis [Unknown]
  - Spondylitis [Unknown]
  - Eye pain [Unknown]
  - Photophobia [Unknown]
  - Angiopathy [Unknown]
  - Fluid retention [Unknown]
  - Oedema [Unknown]
  - Hypersensitivity [Unknown]
  - Allergy to sting [Unknown]
  - Memory impairment [Unknown]
  - Somnolence [Unknown]
  - Atrial fibrillation [Unknown]
  - Angioedema [Unknown]
  - Depression [Unknown]
  - Accident [Unknown]
